FAERS Safety Report 6050637-1 (Version None)
Quarter: 2009Q1

REPORT INFORMATION
  Report Type: 
  Country: None (occurrence: None)
  Receive Date: 20090126
  Receipt Date: 20090116
  Transmission Date: 20090719
  Serious: No
  Sender: FDA-Public Use
  Company Number: US-BAYER-200911249NA

PATIENT
  Age: 24 Year
  Sex: Female
  Weight: 64 kg

DRUGS (4)
  1. MIRENA [Suspect]
     Indication: CONTRACEPTION
     Route: 015
     Dates: start: 20070927, end: 20080520
  2. ZANTAC [Concomitant]
  3. COLACE [Concomitant]
  4. IRON SUPPLEMENT [Concomitant]

REACTIONS (1)
  - MEDICATION ERROR [None]
